FAERS Safety Report 5154208-0 (Version None)
Quarter: 2006Q4

REPORT INFORMATION
  Report Type: 
  Country: None (occurrence: None)
  Receive Date: 20061114
  Receipt Date: 20061027
  Transmission Date: 20070319
  Serious: Yes (Hospitalization)
  Sender: FDA-Public Use
  Company Number: 15098

PATIENT
  Age: 55 Year
  Sex: Male
  Weight: 70 kg

DRUGS (5)
  1. CARBOPLATIN [Suspect]
     Indication: B-CELL LYMPHOMA
     Dosage: 680 MG IV
     Route: 042
     Dates: start: 20060819, end: 20060819
  2. HOLOXAN [Suspect]
     Indication: B-CELL LYMPHOMA
     Dates: start: 20060819, end: 20060819
  3. UROMITEXAN [Suspect]
     Indication: B-CELL LYMPHOMA
     Dates: start: 20060819, end: 20060819
  4. ETOPOSIDE [Suspect]
     Indication: B-CELL LYMPHOMA
     Dates: start: 20060818, end: 20060820
  5. FABRE [Suspect]
     Indication: B-CELL LYMPHOMA
     Dates: start: 20060818, end: 20060818

REACTIONS (3)
  - CONFUSIONAL STATE [None]
  - DISORIENTATION [None]
  - PARANOIA [None]
